FAERS Safety Report 7643940-2 (Version None)
Quarter: 2011Q3

REPORT INFORMATION
  Report Type: 
  Country: None (occurrence: None)
  Receive Date: 20110729
  Receipt Date: 20100614
  Transmission Date: 20111222
  Serious: No
  Sender: FDA-Public Use
  Company Number: US-GLAXOSMITHKLINE-A0866690A

PATIENT
  Sex: Female

DRUGS (1)
  1. DYAZIDE [Suspect]
     Route: 048

REACTIONS (3)
  - ADVERSE EVENT [None]
  - MEDICATION ERROR [None]
  - BLOOD PRESSURE ABNORMAL [None]
